FAERS Safety Report 9954435 (Version 1)
Quarter: 2014Q1

REPORT INFORMATION
  Report Type: Spontaneous
  Country: US (occurrence: US)
  Receive Date: 20140304
  Receipt Date: 20140304
  Transmission Date: 20141002
  Serious: Yes (Other)
  Sender: FDA-Public Use
  Company Number: US-BAUSCH-BL-2014-001066

PATIENT
  Age: 89 Year
  Sex: Male

DRUGS (3)
  1. IPRATROPIUM BROMIDE NASAL SOLUTION 0.06% [Suspect]
     Indication: HOUSE DUST ALLERGY
     Dosage: UNKNOWN
     Route: 045
  2. DIGOXIN [Concomitant]
     Indication: PRODUCT USED FOR UNKNOWN INDICATION
     Dosage: UNKNOWN
     Route: 065
  3. THYROID [Concomitant]
     Indication: PRODUCT USED FOR UNKNOWN INDICATION
     Dosage: UNKNOWN
     Route: 065

REACTIONS (1)
  - Aortic valve replacement [Recovered/Resolved]
